FAERS Safety Report 5366688-6 (Version None)
Quarter: 2007Q2

REPORT INFORMATION
  Report Type: 
  Country: None (occurrence: None)
  Receive Date: 20070622
  Receipt Date: 20060509
  Transmission Date: 20071010
  Serious: No
  Sender: FDA-Public Use
  Company Number: US-ASTRAZENECA-2006UW09083

PATIENT
  Age: 77 Year
  Sex: Female
  Weight: 74.8 kg

DRUGS (7)
  1. RHINOCORT [Suspect]
     Indication: EAR INFECTION
     Dosage: 1 SPRAY EACH NOSTRIL QHS
     Route: 045
     Dates: start: 20060501, end: 20060508
  2. BIAXIN [Suspect]
     Dates: start: 20060501
  3. NORVASC [Concomitant]
  4. ALTACE [Concomitant]
  5. FUROSEMIDE [Concomitant]
  6. NEXIUM [Concomitant]
  7. PREDNISONE TAB [Concomitant]

REACTIONS (1)
  - DYSGEUSIA [None]
